FAERS Safety Report 11581847 (Version 1)
Quarter: 2015Q4

REPORT INFORMATION
  Report Type: Spontaneous
  Country: US (occurrence: US)
  Receive Date: 20151001
  Receipt Date: 20151001
  Transmission Date: 20160304
  Serious: No
  Sender: FDA-Public Use
  Company Number: US-ROCHE-678172

PATIENT
  Age: 23 Year
  Sex: Male
  Weight: 91.6 kg

DRUGS (1)
  1. PEGASYS [Suspect]
     Active Substance: PEGINTERFERON ALFA-2A
     Indication: HEPATITIS B
     Route: 058
     Dates: start: 20091005, end: 20100120

REACTIONS (1)
  - Viral load increased [Not Recovered/Not Resolved]

NARRATIVE: CASE EVENT DATE: 20091229
